FAERS Safety Report 8967694 (Version 1)
Quarter: 2012Q4

REPORT INFORMATION
  Report Type: Spontaneous
  Country: AE (occurrence: None)
  Receive Date: 20121207
  Receipt Date: 20121207
  Transmission Date: 20130627
  Serious: Yes (Other)
  Sender: FDA-Public Use
  Company Number: 2012-21470

PATIENT
  Age: 35 Year
  Sex: Male

DRUGS (4)
  1. CLOBETASOL PROPIONATE [Suspect]
     Indication: ALLERGIC RASH
     Route: 061
  2. BETAMETHASONE [Suspect]
     Indication: ALLERGIC RASH
     Route: 061
  3. TERBINAFINE HYDROCHLORIDE [Suspect]
     Indication: TRICHOPHYTON INFECTION
  4. PREDNISOLONE [Suspect]
     Indication: KERION
     Route: 048

REACTIONS (10)
  - Psoriasis [None]
  - Kerion [None]
  - Trichophytosis [None]
  - Infection masked [None]
  - Dandruff [None]
  - Nail disorder [None]
  - Hyperkeratosis [None]
  - Fungal skin infection [None]
  - Onychomycosis [None]
  - Rebound effect [None]
